FAERS Safety Report 11130031 (Version 2)
Quarter: 2015Q2

REPORT INFORMATION
  Report Type: Spontaneous
  Country: DK (occurrence: DK)
  Receive Date: 20150521
  Receipt Date: 20150522
  Transmission Date: 20150821
  Serious: Yes (Death, Hospitalization, Other)
  Sender: FDA-Public Use
  Company Number: PHHY2015DK056927

PATIENT
  Age: 60 Year
  Sex: Female

DRUGS (3)
  1. TACROLIMUS. [Suspect]
     Active Substance: TACROLIMUS
     Indication: IMMUNOSUPPRESSANT DRUG THERAPY
     Dosage: UNK
     Route: 065
  2. MYCOPHENOLIC ACID. [Suspect]
     Active Substance: MYCOPHENOLIC ACID
     Indication: IMMUNOSUPPRESSANT DRUG THERAPY
     Route: 065
  3. METHYLPREDNISOLONE. [Suspect]
     Active Substance: METHYLPREDNISOLONE
     Indication: IMMUNOSUPPRESSANT DRUG THERAPY
     Route: 065

REACTIONS (11)
  - Cognitive disorder [Unknown]
  - Azotaemia [Unknown]
  - Hemiparesis [Unknown]
  - Somnolence [Unknown]
  - Renal failure [Unknown]
  - Aphasia [Unknown]
  - VIIth nerve paralysis [Unknown]
  - Partial seizures [Unknown]
  - Leukoencephalopathy [Fatal]
  - Drug ineffective [Unknown]
  - Uraemic encephalopathy [Fatal]
